FAERS Safety Report 5663848-1 (Version None)
Quarter: 2008Q1

REPORT INFORMATION
  Report Type: 
  Country: None (occurrence: None)
  Receive Date: 20080311
  Receipt Date: 20080228
  Transmission Date: 20080703
  Serious: Yes (Life-Threatening, Hospitalization)
  Sender: FDA-Public Use
  Company Number: GXKR2008IT02221

PATIENT
  Age: 45 Year
  Sex: Female

DRUGS (3)
  1. ATENOLOL [Suspect]
  2. NIFEDIPINE [Suspect]
  3. WARFARIN SODIUM [Concomitant]

REACTIONS (20)
  - ALANINE AMINOTRANSFERASE INCREASED [None]
  - ANURIA [None]
  - ASPARTATE AMINOTRANSFERASE INCREASED [None]
  - ATRIOVENTRICULAR BLOCK FIRST DEGREE [None]
  - BLOOD LACTATE DEHYDROGENASE INCREASED [None]
  - CEREBRAL HAEMORRHAGE [None]
  - COMA [None]
  - CYTOLYTIC HEPATITIS [None]
  - GASTROINTESTINAL MOTILITY DISORDER [None]
  - HAEMODIALYSIS [None]
  - HEART RATE DECREASED [None]
  - HYPOTENSION [None]
  - ILEUS PARALYTIC [None]
  - METABOLIC ACIDOSIS [None]
  - MULTI-ORGAN FAILURE [None]
  - OVERDOSE [None]
  - RESPIRATORY ACIDOSIS [None]
  - RHABDOMYOLYSIS [None]
  - THERAPEUTIC AGENT TOXICITY [None]
  - WHITE BLOOD CELL COUNT INCREASED [None]
